FAERS Safety Report 5541668-6 (Version None)
Quarter: 2007Q4

REPORT INFORMATION
  Report Type: 
  Country: None (occurrence: None)
  Receive Date: 20071210
  Receipt Date: 20071130
  Transmission Date: 20080405
  Serious: Yes (Hospitalization, Disabling)
  Sender: FDA-Public Use
  Company Number: PHBS2007GB20326

PATIENT
  Sex: Female

DRUGS (3)
  1. CYCLOSPORINE [Suspect]
     Indication: PEMPHIGUS
     Route: 065
  2. AZATHIOPRINE [Suspect]
     Indication: PEMPHIGUS
     Route: 065
  3. STEROIDS NOS [Suspect]
     Indication: PEMPHIGUS
     Route: 065

REACTIONS (5)
  - BREAST CANCER [None]
  - BREAST OPERATION [None]
  - GAIT DISTURBANCE [None]
  - PAIN [None]
  - RADIOTHERAPY [None]
